FAERS Safety Report 6744258-2 (Version None)
Quarter: 2010Q2

REPORT INFORMATION
  Report Type: 
  Country: None (occurrence: None)
  Receive Date: 20100527
  Receipt Date: 20100517
  Transmission Date: 20101027
  Serious: Yes (Hospitalization)
  Sender: FDA-Public Use
  Company Number: FR-ABBOTT-10P-056-0641623-00

PATIENT
  Sex: Male
  Weight: 80 kg

DRUGS (6)
  1. HUMIRA [Suspect]
     Indication: MUSCULOSKELETAL PAIN
     Route: 058
     Dates: start: 20060131, end: 20100311
  2. METOJECT [Suspect]
     Indication: MUSCULOSKELETAL PAIN
     Dates: start: 20080327
  3. KETOPROFEN [Concomitant]
     Indication: MUSCULOSKELETAL PAIN
     Route: 048
     Dates: start: 20010101
  4. PRIMPERAN TAB [Concomitant]
     Indication: PSORIATIC ARTHROPATHY
     Route: 048
     Dates: start: 20010101
  5. OMEPRAZOLE [Concomitant]
     Indication: PSORIATIC ARTHROPATHY
     Route: 048
  6. METHOTREXATE [Concomitant]
     Indication: MUSCULOSKELETAL PAIN

REACTIONS (2)
  - BLADDER PAPILLOMA [None]
  - URINARY BLADDER POLYP [None]
